FAERS Safety Report 10079647 (Version 1)
Quarter: 2014Q2

REPORT INFORMATION
  Report Type: Spontaneous
  Country: US (occurrence: None)
  Receive Date: 20140414
  Receipt Date: 20140414
  Transmission Date: 20141212
  Serious: Yes (Disabling)
  Sender: FDA-Public Use
  Company Number: None

PATIENT
  Age: 76 Year
  Sex: Male
  Weight: 83.46 kg

DRUGS (1)
  1. FOSRENOL [Suspect]
     Indication: BLOOD PHOSPHORUS INCREASED
     Dosage: 1  PER MEAL, TAKEN BY MOUTH

REACTIONS (1)
  - Vomiting [None]
